FAERS Safety Report 4325715-5 (Version None)
Quarter: 2004Q1

REPORT INFORMATION
  Report Type: 
  Country: None (occurrence: None)
  Receive Date: 20040324
  Receipt Date: 20040310
  Transmission Date: 20041129
  Serious: Yes (Hospitalization)
  Sender: FDA-Public Use
  Company Number: US-JNJFOC-20040302687

PATIENT
  Age: 50 Year
  Sex: Female

DRUGS (5)
  1. DURAGESIC [Suspect]
     Indication: PAIN
     Dosage: 75 UG/HR, 1 IN 48 HOUR, TRANSDERMAL
     Route: 062
     Dates: start: 20031001
  2. ACTIQ [Concomitant]
  3. NEURONTIN [Concomitant]
  4. CELEXA [Concomitant]
  5. PROVICAL (ALL OTHER THERAPEUTIC PRODUCTS) [Concomitant]

REACTIONS (1)
  - HOSPITALISATION [None]
